FAERS Safety Report 22316383 (Version 2)
Quarter: 2023Q2

REPORT INFORMATION
  Report Type: Report from Study
  Country: US (occurrence: US)
  Receive Date: 20230513
  Receipt Date: 20230615
  Transmission Date: 20230722
  Serious: Yes (Other)
  Sender: FDA-Public Use
  Company Number: US-002147023-NVSC2023US107343

PATIENT
  Sex: Female

DRUGS (8)
  1. ENTRESTO [Suspect]
     Active Substance: SACUBITRIL\VALSARTAN
     Indication: Product used for unknown indication
     Dosage: 1 DOSAGE FORM, BID
     Route: 048
  2. METOPROLOL [Suspect]
     Active Substance: METOPROLOL
     Indication: Product used for unknown indication
     Dosage: UNK
     Route: 065
  3. METOPROLOL [Suspect]
     Active Substance: METOPROLOL
     Dosage: 100 MG
     Route: 048
  4. METOPROLOL [Suspect]
     Active Substance: METOPROLOL
     Dosage: 0.5 MG (50MG)
     Route: 048
  5. METOPROLOL [Suspect]
     Active Substance: METOPROLOL
     Dosage: 100 MG
     Route: 048
  6. METFORMIN [Concomitant]
     Active Substance: METFORMIN HYDROCHLORIDE
     Indication: Product used for unknown indication
     Dosage: UNK
     Route: 065
  7. NITROGLYCERIN [Concomitant]
     Active Substance: NITROGLYCERIN
     Indication: Myocardial infarction
     Dosage: UNK
     Route: 065
  8. NITROGLYCERIN [Concomitant]
     Active Substance: NITROGLYCERIN
     Dosage: UNK (MORE)
     Route: 065

REACTIONS (8)
  - Pneumonia [Unknown]
  - Throat clearing [Unknown]
  - Seasonal allergy [Unknown]
  - Upper-airway cough syndrome [Unknown]
  - Hypotension [Unknown]
  - Dizziness [Unknown]
  - Product dose omission in error [Unknown]
  - Wrong technique in product usage process [Unknown]
